FAERS Safety Report 7431028-5 (Version None)
Quarter: 2011Q2

REPORT INFORMATION
  Report Type: 
  Country: None (occurrence: None)
  Receive Date: 20110421
  Receipt Date: 20110419
  Transmission Date: 20111010
  Serious: Yes (Death, Other)
  Sender: FDA-Public Use
  Company Number: US-B.I. PHARMACEUTICALS,INC./RIDGEFIELD-2011-BP-06724BP

PATIENT
  Age: 66 Year
  Sex: Female

DRUGS (9)
  1. BYSTOLIC [Concomitant]
     Indication: ATRIAL FIBRILLATION
     Dates: start: 20110216
  2. ATENOLOL [Concomitant]
     Indication: ATRIAL FIBRILLATION
     Dates: start: 20110212, end: 20110216
  3. DDAVP [Concomitant]
     Indication: DIABETES INSIPIDUS
     Dosage: 0.2 MG
  4. PRADAXA [Suspect]
     Indication: ATRIAL FIBRILLATION
     Dosage: 300 MG
     Route: 048
     Dates: start: 20110214
  5. LASIX [Concomitant]
     Indication: CARDIAC DISORDER
  6. NEXIUM [Concomitant]
  7. DIGOXIN [Concomitant]
     Indication: CARDIAC DISORDER
     Dosage: 0.25 MG
     Dates: start: 20110222
  8. CARDIA [Concomitant]
     Dosage: 840 MG
  9. LOVASTATIN [Concomitant]
     Indication: CARDIAC DISORDER
     Dosage: 40 MG

REACTIONS (3)
  - CEREBROVASCULAR ACCIDENT [None]
  - OVARIAN CANCER [None]
  - ABDOMINAL PAIN UPPER [None]
